FAERS Safety Report 24422968 (Version 1)
Quarter: 2024Q4

REPORT INFORMATION
  Report Type: Spontaneous
  Country: RO (occurrence: RO)
  Receive Date: 20241010
  Receipt Date: 20241010
  Transmission Date: 20250114
  Serious: Yes (Other)
  Sender: RANBAXY
  Company Number: RO-SUN PHARMACEUTICAL INDUSTRIES LTD-2024RR-471760

PATIENT
  Age: 43 Year
  Sex: Male

DRUGS (2)
  1. PENTOXIFYLLINE [Suspect]
     Active Substance: PENTOXIFYLLINE
     Indication: Purpura
     Dosage: 800 MILLIGRAM, DAILY
     Route: 065
  2. PREDNISONE [Suspect]
     Active Substance: PREDNISONE
     Indication: Purpura
     Dosage: 30 MILLIGRAM, DAILY
     Route: 048

REACTIONS (1)
  - Condition aggravated [Unknown]
